FAERS Safety Report 5080622-8 (Version None)
Quarter: 2006Q3

REPORT INFORMATION
  Report Type: 
  Country: None (occurrence: None)
  Receive Date: 20060814
  Receipt Date: 20060814
  Transmission Date: 20061208
  Serious: Yes (Other)
  Sender: FDA-Public Use
  Company Number: None

PATIENT

DRUGS (1)
  1. BOTOX [Suspect]

REACTIONS (4)
  - DYSPNOEA [None]
  - NEUROMYOPATHY [None]
  - NO REACTION ON PREVIOUS EXPOSURE TO DRUG [None]
  - PARALYSIS [None]
